FAERS Safety Report 6768176-9 (Version None)
Quarter: 2010Q2

REPORT INFORMATION
  Report Type: 
  Country: None (occurrence: None)
  Receive Date: 20100614
  Receipt Date: 20100608
  Transmission Date: 20101027
  Serious: Yes (Hospitalization)
  Sender: FDA-Public Use
  Company Number: US-GILEAD-2010-0029662

PATIENT
  Sex: Female

DRUGS (25)
  1. LETAIRIS [Suspect]
     Indication: PULMONARY ARTERIAL HYPERTENSION
     Route: 048
     Dates: start: 20100123
  2. COUMADIN [Concomitant]
  3. LASIX [Concomitant]
  4. BUMEX [Concomitant]
  5. ZOCOR [Concomitant]
  6. ACTIFED W/ CODEINE [Concomitant]
  7. DILAUDID [Concomitant]
  8. LYRICA [Concomitant]
  9. VICODIN [Concomitant]
  10. XANAX [Concomitant]
  11. PREDNISONE [Concomitant]
  12. PRILOSEC [Concomitant]
  13. COLACE [Concomitant]
  14. ACTOS [Concomitant]
  15. BYETTA [Concomitant]
  16. HUMALOG [Concomitant]
  17. LANTUS [Concomitant]
  18. ALBUTEROL [Concomitant]
  19. ATROVENT HFA [Concomitant]
  20. MAGNESIUM OXIDE [Concomitant]
  21. SENNA-C [Concomitant]
  22. FERROUS SULFATE TAB [Concomitant]
  23. FORTEO [Concomitant]
  24. CALTRATE [Concomitant]
  25. VITAMIN B-12 [Concomitant]

REACTIONS (3)
  - DYSPNOEA [None]
  - PNEUMONIA [None]
  - PYREXIA [None]
